FAERS Safety Report 8803797 (Version 5)
Quarter: 2013Q1

REPORT INFORMATION
  Report Type: Spontaneous
  Country: US (occurrence: US)
  Receive Date: 20120924
  Receipt Date: 20130114
  Transmission Date: 20140127
  Serious: No
  Sender: FDA-Public Use
  Company Number: US-PFIZER INC-2012229689

PATIENT
  Age: 75 Year
  Sex: Male

DRUGS (1)
  1. INLYTA [Suspect]
     Indication: RENAL CANCER
     Dosage: 5 MG, 2X/DAY
     Dates: start: 20120911

REACTIONS (13)
  - Decreased appetite [Unknown]
  - Nausea [Unknown]
  - Weight decreased [Unknown]
  - Bladder pain [Unknown]
  - Micturition urgency [Unknown]
  - Pollakiuria [Unknown]
  - Flatulence [Unknown]
  - Blood urine present [Unknown]
  - Dysuria [Unknown]
  - Chest pain [Unknown]
  - Faeces discoloured [Unknown]
  - Asthenia [Unknown]
  - Malaise [Unknown]
